FAERS Safety Report 8135903-8 (Version None)
Quarter: 2012Q1

REPORT INFORMATION
  Report Type: 
  Country: None (occurrence: None)
  Receive Date: 20120214
  Receipt Date: 20120201
  Transmission Date: 20120608
  Serious: Yes (Death, Hospitalization)
  Sender: FDA-Public Use
  Company Number: JP-TEVA-2011002089

PATIENT
  Sex: Male

DRUGS (27)
  1. DORIPENEM HYDRATE [Concomitant]
     Dates: start: 20110117, end: 20110121
  2. GRANISETRON HYDROCHLORIDE [Concomitant]
     Dates: start: 20101227, end: 20110429
  3. BENDAMUSTINE [Suspect]
     Route: 042
     Dates: start: 20110525, end: 20110526
  4. FAROPENEM SODIUM HYDRATE [Concomitant]
     Dates: start: 20101229, end: 20110104
  5. BROTIZOLAM [Concomitant]
  6. BENDAMUSTINE [Suspect]
     Indication: MANTLE CELL LYMPHOMA
     Route: 042
     Dates: start: 20101227, end: 20101228
  7. GRANISETRON HYDROCHLORIDE [Concomitant]
     Dates: start: 20110119, end: 20110120
  8. DEXAMETHASONE SODIUM PHOSPHATE [Concomitant]
     Dates: start: 20101227, end: 20110429
  9. BENDAMUSTINE [Suspect]
     Route: 042
     Dates: start: 20110621, end: 20110622
  10. OXYCODONE HCL [Concomitant]
     Dates: start: 20100124, end: 20100510
  11. OXYCODONE HCL [Concomitant]
     Dates: start: 20100511, end: 20110213
  12. DICLOFENAC SODIUM [Concomitant]
  13. BROTIZOLAM [Concomitant]
  14. ACYCLOVIR [Concomitant]
     Dates: start: 20101227, end: 20110211
  15. DORIPENEM HYDRATE [Concomitant]
     Dates: start: 20101230, end: 20101230
  16. DEXAMETHASONE [Concomitant]
     Dates: start: 20110317
  17. LENOGRASTIM [Concomitant]
     Dates: start: 20101229, end: 20101231
  18. SULFAMETHOXAZOLE AND TRIMETHOPRIM [Concomitant]
  19. BENDAMUSTINE [Suspect]
     Route: 042
     Dates: start: 20110119, end: 20110120
  20. BENDAMUSTINE [Suspect]
     Route: 042
     Dates: start: 20110719, end: 20110720
  21. OXYCODONE HCL [Concomitant]
     Dates: start: 20110213
  22. TRANEXAMIC ACID [Concomitant]
     Dates: start: 20110107, end: 20110130
  23. PREGABALIN [Concomitant]
     Dates: start: 20110121
  24. BENDAMUSTINE [Suspect]
     Route: 042
     Dates: start: 20110428, end: 20110429
  25. ACYCLOVIR [Concomitant]
     Dates: start: 20110129, end: 20110211
  26. LENOGRASTIM [Concomitant]
     Dates: start: 20101229, end: 20101231
  27. GRANISETRON HYDROCHLORIDE [Concomitant]
     Dates: start: 20110428, end: 20110429

REACTIONS (15)
  - RASH [None]
  - FEBRILE NEUTROPENIA [None]
  - DYSGEUSIA [None]
  - ALANINE AMINOTRANSFERASE INCREASED [None]
  - WEIGHT DECREASED [None]
  - PLATELET COUNT DECREASED [None]
  - HYPOCALCAEMIA [None]
  - ASPARTATE AMINOTRANSFERASE INCREASED [None]
  - PLEURISY [None]
  - LYMPHOCYTE COUNT DECREASED [None]
  - STAPHYLOCOCCAL SEPSIS [None]
  - FUNGAEMIA [None]
  - NEOPLASM PROGRESSION [None]
  - MANTLE CELL LYMPHOMA [None]
  - HYPOPHAGIA [None]
